FAERS Safety Report 8130967 (Version 5)
Quarter: 2012Q4

REPORT INFORMATION
  Report Type: 
  Country: US (occurrence: US)
  Receive Date: 20110912
  Receipt Date: 20121221
  Transmission Date: 20130627
  Serious: Yes (Hospitalization, Other)
  Sender: FDA-Public Use
  Company Number: US-BAYER-2011-082060

PATIENT
  Age: 50 Year
  Sex: Female
  Weight: 74.38 kg

DRUGS (17)
  1. YAZ [Suspect]
     Indication: PREMENOPAUSE
     Dosage: UNK
     Dates: start: 200810, end: 20090526
  2. YAZ [Suspect]
     Indication: FIBROMA
  3. YAZ [Suspect]
     Indication: MENSTRUAL FLOW EXCESSIVE
  4. OCELLA [Suspect]
     Indication: PREMENOPAUSE
     Dosage: UNK
     Dates: start: 200810, end: 20090526
  5. OCELLA [Suspect]
     Indication: FIBROMA
  6. PROPRANOLOL [Concomitant]
     Indication: MIGRAINE
     Dosage: 80 mg, UNK
     Route: 048
     Dates: start: 20081113, end: 20090720
  7. AMITRIPTYLINE HCL [Concomitant]
     Indication: MIGRAINE
     Dosage: 25 mg, UNK
     Route: 048
     Dates: start: 20081126, end: 20090327
  8. NITROFURANTOIN [Concomitant]
     Dosage: UNK
     Route: 048
     Dates: start: 20090207, end: 20090211
  9. IBUPROFEN [Concomitant]
     Dosage: 800 mg, UNK
     Route: 048
     Dates: start: 20090223, end: 20090410
  10. PROMETRIUM [Concomitant]
     Dosage: 200 mg, UNK
     Route: 048
     Dates: start: 20090223, end: 20090410
  11. ESGIC [Concomitant]
     Indication: TENSION HEADACHES
     Dosage: UNK
     Dates: start: 200905
  12. ESGIC [Concomitant]
     Indication: TENSION HEADACHES
  13. ESGIC [Concomitant]
     Indication: TENSION HEADACHES
  14. MACROBID [Concomitant]
     Dosage: 100 mg, BID
     Route: 048
     Dates: start: 20090208
  15. MULTIVITAMINS AND IRON [Concomitant]
     Dosage: UNK UNK, QD
     Dates: start: 20090211
  16. FERROUS SULFATE [Concomitant]
     Dosage: UNK
     Dates: start: 20090227
  17. VITAMIN C [Concomitant]
     Dosage: UNK
     Dates: start: 20090227

REACTIONS (10)
  - Cerebrovascular accident [None]
  - Cognitive disorder [None]
  - Aphasia [None]
  - Injury [None]
  - Hypoaesthesia [None]
  - Hypoaesthesia [None]
  - Hypoaesthesia [None]
  - Pain [None]
  - Mental disorder [None]
  - Off label use [None]
